FAERS Safety Report 25248092 (Version 4)
Quarter: 2025Q2

REPORT INFORMATION
  Report Type: Report from Study
  Country: DE (occurrence: DE)
  Receive Date: 20250429
  Receipt Date: 20250619
  Transmission Date: 20250717
  Serious: Yes (Other)
  Sender: ALEXION PHARMACEUTICALS
  Company Number: DE-002147023-NVSC2019DE033971

PATIENT
  Weight: 64 kg

DRUGS (7)
  1. FULVESTRANT [Suspect]
     Active Substance: FULVESTRANT
     Indication: Breast cancer
     Dosage: 500 MG, QMO
  2. LETROZOLE [Suspect]
     Active Substance: LETROZOLE
     Indication: Breast cancer
     Dosage: 2.5 MG, QD
  3. LETROZOLE [Suspect]
     Active Substance: LETROZOLE
     Dosage: 2.5 MG, QD, START DATE: 10-OCT-2019
  4. RIBOCICLIB [Suspect]
     Active Substance: RIBOCICLIB
     Indication: Breast cancer
     Dosage: 400 MG, QD (400 MG ADMINISTRATION  SCHEME 21 DAYS INTAKE, 7 DAYS PAUSE)
  5. RIBOCICLIB [Suspect]
     Active Substance: RIBOCICLIB
     Dosage: 200 MG, QD (200 MG ADMINISTRATION  SCHEME 21 DAYS INTAKE, 7 DAYS PAUSE)
  6. RIBOCICLIB [Suspect]
     Active Substance: RIBOCICLIB
     Dosage: 400 MG, QD (400 MG ADMINISTRATION  SCHEME 21 DAYS INTAKE, 7 DAYS PAUSE)
  7. RIBOCICLIB [Suspect]
     Active Substance: RIBOCICLIB
     Dosage: 400 MG, QD (400 MG ADMINISTRATION  SCHEME 21 DAYS INTAKE, 7 DAYS PAUSE)

REACTIONS (11)
  - Metastases to meninges [Unknown]
  - Metastasis [Not Recovered/Not Resolved]
  - Cancer pain [Not Recovered/Not Resolved]
  - Spinal pain [Not Recovered/Not Resolved]
  - Dysphagia [Recovered/Resolved]
  - Fatigue [Not Recovered/Not Resolved]
  - Nausea [Recovered/Resolved]
  - Pain in extremity [Not Recovered/Not Resolved]
  - Arthralgia [Not Recovered/Not Resolved]
  - Coronavirus infection [Recovered/Resolved]
  - Off label use [Unknown]
